FAERS Safety Report 9580066 (Version 1)
Quarter: 2013Q3

REPORT INFORMATION
  Report Type: Spontaneous
  Country: US (occurrence: None)
  Receive Date: 20130916
  Receipt Date: 20130916
  Transmission Date: 20140515
  Serious: Yes (Other)
  Sender: FDA-Public Use
  Company Number: JPI-P-025271

PATIENT
  Age: 41 Year
  Sex: Female
  Weight: 81.19 kg

DRUGS (2)
  1. XYREM [Suspect]
     Indication: NARCOLEPSY
     Dosage: 4.5 GM (2.25 GM, 2 IN 1 D), ORAL
     Route: 048
     Dates: start: 20111228
  2. SEROTONIN NOREPINEPHRINE REUPTAKE INHIBITOR [Concomitant]

REACTIONS (2)
  - Weight decreased [None]
  - Decreased appetite [None]
